FAERS Safety Report 24778892 (Version 1)
Quarter: 2024Q4

REPORT INFORMATION
  Report Type: Spontaneous
  Country: US (occurrence: None)
  Receive Date: 20241226
  Receipt Date: 20241226
  Transmission Date: 20250115
  Serious: No
  Sender: Public
  Company Number: None

PATIENT
  Age: 34 Year
  Sex: Female
  Weight: 69.75 kg

DRUGS (2)
  1. QULIPTA [Suspect]
     Active Substance: ATOGEPANT
     Indication: Migraine
     Dates: start: 20241218
  2. UBRELVY [Concomitant]
     Active Substance: UBROGEPANT

REACTIONS (3)
  - Fatigue [None]
  - Arthralgia [None]
  - Depression [None]

NARRATIVE: CASE EVENT DATE: 20241223
